FAERS Safety Report 24428514 (Version 1)
Quarter: 2024Q4

REPORT INFORMATION
  Report Type: Spontaneous
  Country: US (occurrence: US)
  Receive Date: 20241011
  Receipt Date: 20241011
  Transmission Date: 20250115
  Serious: Yes (Other)
  Sender: Atlantis Consumer Healthcare
  Company Number: US-ATLANTISCH-2024-US-024394

PATIENT
  Age: 39 Year
  Sex: Female
  Weight: 77.11 kg

DRUGS (2)
  1. DOCUSATE SODIUM\SENNOSIDES [Suspect]
     Active Substance: DOCUSATE SODIUM\SENNOSIDES
     Indication: Constipation
     Dosage: THREE TABLETS AT ONCE
     Route: 048
     Dates: start: 20240424, end: 20240424
  2. SENNOSIDES [Suspect]
     Active Substance: SENNOSIDES

REACTIONS (7)
  - Product packaging issue [Unknown]
  - Diarrhoea [Recovered/Resolved]
  - Abdominal pain upper [Recovered/Resolved]
  - Abortion spontaneous [Unknown]
  - Exposure during pregnancy [Unknown]
  - Accidental overdose [Unknown]
  - Medication error [Unknown]

NARRATIVE: CASE EVENT DATE: 20240424
